FAERS Safety Report 7086932-7 (Version None)
Quarter: 2010Q4

REPORT INFORMATION
  Report Type: 
  Country: None (occurrence: None)
  Receive Date: 20101106
  Receipt Date: 20100903
  Transmission Date: 20110411
  Serious: No
  Sender: FDA-Public Use
  Company Number: US-WYE-H16594710

PATIENT
  Sex: Female

DRUGS (18)
  1. RAPAMUNE [Suspect]
     Indication: HEART TRANSPLANT
     Route: 048
     Dates: start: 20090701
  2. RAPAMUNE [Suspect]
     Indication: CORONARY ARTERY DISEASE
  3. GLIBENCLAMIDE [Concomitant]
  4. SPIRONOLACTONE [Concomitant]
  5. BACTRIM DS [Concomitant]
  6. POTASSIUM CHLORIDE [Concomitant]
  7. VALCYTE [Concomitant]
  8. PREDNISONE [Concomitant]
  9. COREG [Concomitant]
  10. NIFEREX [Concomitant]
  11. CRESTOR [Concomitant]
  12. ASCORBIC ACID [Concomitant]
  13. FOLIC ACID [Concomitant]
  14. FOSAMAX [Concomitant]
  15. PEPCID [Concomitant]
  16. SYNTHROID [Concomitant]
  17. CALCIUM CARBONATE/VITAMIN D [Concomitant]
  18. LASIX [Concomitant]

REACTIONS (1)
  - VAGINAL ODOUR [None]
